FAERS Safety Report 7622017-6 (Version None)
Quarter: 2011Q3

REPORT INFORMATION
  Report Type: 
  Country: None (occurrence: None)
  Receive Date: 20110720
  Receipt Date: 20101109
  Transmission Date: 20111222
  Serious: Yes (Hospitalization, Other)
  Sender: FDA-Public Use
  Company Number: US-BAYER-201028845NA

PATIENT
  Age: 20 Year
  Sex: Female
  Weight: 59 kg

DRUGS (8)
  1. FIBER [Concomitant]
     Route: 065
     Dates: start: 20050301
  2. YAZ [Suspect]
     Indication: PRODUCT USED FOR UNKNOWN INDICATION
     Route: 048
  3. CIPROFLOXACIN [Concomitant]
     Route: 048
     Dates: start: 20050601
  4. DROSPIRENONE AND ETHINYL ESTRADIOL [Suspect]
     Indication: CONTRACEPTION
     Dosage: 1 TABLET/DAY
     Route: 048
     Dates: start: 20040101, end: 20070615
  5. FAMOTIDINE [Concomitant]
     Route: 048
     Dates: start: 20050501
  6. FIBRE, DIETARY [Concomitant]
     Indication: ABDOMINAL DISCOMFORT
     Route: 065
     Dates: start: 20050301
  7. YASMIN [Suspect]
     Indication: CONTRACEPTION
     Dosage: 1 TABLET/DAY
     Route: 048
     Dates: start: 20040101, end: 20070615
  8. PROTONIX [Concomitant]
     Indication: GASTROOESOPHAGEAL REFLUX DISEASE
     Route: 065
     Dates: start: 20050501

REACTIONS (10)
  - GASTRITIS [None]
  - MALAISE [None]
  - CHOLECYSTITIS ACUTE [None]
  - NAUSEA [None]
  - CHOLELITHIASIS [None]
  - ABDOMINAL PAIN UPPER [None]
  - CHOLECYSTITIS CHRONIC [None]
  - ABDOMINAL TENDERNESS [None]
  - CHILLS [None]
  - FOOD ALLERGY [None]
